FAERS Safety Report 12368785 (Version 1)
Quarter: 2016Q2

REPORT INFORMATION
  Report Type: Spontaneous
  Country: IL (occurrence: IL)
  Receive Date: 20160513
  Receipt Date: 20160513
  Transmission Date: 20160815
  Serious: Yes (Death, Other)
  Sender: FDA-Public Use
  Company Number: IL-ELI_LILLY_AND_COMPANY-IL201605003112

PATIENT
  Sex: Male

DRUGS (6)
  1. AVASTIN [Concomitant]
     Active Substance: BEVACIZUMAB
     Indication: METASTASES TO CENTRAL NERVOUS SYSTEM
  2. CARBOPLATIN. [Concomitant]
     Active Substance: CARBOPLATIN
     Indication: METASTASES TO CENTRAL NERVOUS SYSTEM
  3. ALIMTA [Suspect]
     Active Substance: PEMETREXED DISODIUM
     Indication: MEDIASTINUM NEOPLASM
     Dosage: UNK
     Dates: start: 201210, end: 2015
  4. ALIMTA [Suspect]
     Active Substance: PEMETREXED DISODIUM
     Indication: METASTASES TO CENTRAL NERVOUS SYSTEM
     Dosage: UNK, UNKNOWN
     Route: 065
     Dates: start: 201603
  5. CARBOPLATIN. [Concomitant]
     Active Substance: CARBOPLATIN
     Indication: MEDIASTINUM NEOPLASM
     Dosage: UNK
     Dates: end: 2015
  6. AVASTIN [Concomitant]
     Active Substance: BEVACIZUMAB
     Indication: MEDIASTINUM NEOPLASM

REACTIONS (3)
  - Pericardial effusion [Unknown]
  - Off label use [Unknown]
  - Death [Fatal]
